FAERS Safety Report 18870930 (Version 1)
Quarter: 2021Q1

REPORT INFORMATION
  Report Type: Spontaneous
  Country: US (occurrence: US)
  Receive Date: 20210210
  Receipt Date: 20210210
  Transmission Date: 20210420
  Serious: No
  Sender: FDA-Public Use
  Company Number: NVSC2021US031025

PATIENT
  Sex: Female

DRUGS (2)
  1. ELIQUIS [Interacting]
     Active Substance: APIXABAN
     Indication: ATRIAL FIBRILLATION
     Dosage: UNK
     Route: 065
  2. VOLTAREN [Suspect]
     Active Substance: DICLOFENAC SODIUM
     Indication: ARTHRALGIA
     Dosage: UNK
     Route: 065

REACTIONS (5)
  - Labelled drug-drug interaction issue [Unknown]
  - Inappropriate schedule of product administration [Unknown]
  - Product administered at inappropriate site [Unknown]
  - Drug effective for unapproved indication [Unknown]
  - Product prescribing error [Unknown]
